FAERS Safety Report 6052938-X (Version None)
Quarter: 2009Q1

REPORT INFORMATION
  Report Type: 
  Country: None (occurrence: None)
  Receive Date: 20090127
  Receipt Date: 20090116
  Transmission Date: 20090719
  Serious: Yes (Hospitalization)
  Sender: FDA-Public Use
  Company Number: FR-NOVOPROD-283321

PATIENT
  Age: 89 Year
  Sex: Female

DRUGS (4)
  1. NOVONORM [Suspect]
     Indication: TYPE 2 DIABETES MELLITUS
     Dosage: 3 MG, QD
     Route: 048
     Dates: start: 20080301, end: 20081102
  2. AMARYL [Suspect]
     Indication: TYPE 2 DIABETES MELLITUS
     Dosage: 4 MG, QD
     Route: 048
     Dates: start: 20060101
  3. BETASERC                           /00141801/ [Concomitant]
     Dosage: 48 MG, QD
     Route: 048
     Dates: start: 20080101, end: 20081102
  4. TANGANIL                           /00129601/ [Concomitant]
     Dosage: 2000 MG, QD
     Route: 048
     Dates: start: 20080101, end: 20081102

REACTIONS (5)
  - DYSARTHRIA [None]
  - FALL [None]
  - HYPOGLYCAEMIA [None]
  - NERVOUS SYSTEM DISORDER [None]
  - SOMNOLENCE [None]
